FAERS Safety Report 13032898 (Version 1)
Quarter: 2016Q4

REPORT INFORMATION
  Report Type: Spontaneous
  Country: US (occurrence: US)
  Receive Date: 20161215
  Receipt Date: 20161215
  Transmission Date: 20170207
  Serious: No
  Sender: FDA-Public Use
  Company Number: US-BION-20160472

PATIENT
  Age: 66 Year
  Sex: Female

DRUGS (2)
  1. PROGESTERONE CAPSULES [Suspect]
     Active Substance: PROGESTERONE
  2. PROGESTERONE CAPSULES [Suspect]
     Active Substance: PROGESTERONE

REACTIONS (2)
  - Gastrointestinal disorder [Unknown]
  - Lung disorder [None]
